FAERS Safety Report 14572670 (Version 1)
Quarter: 2018Q1

REPORT INFORMATION
  Report Type: Spontaneous
  Country: CN (occurrence: CN)
  Receive Date: 20180226
  Receipt Date: 20180226
  Transmission Date: 20180509
  Serious: Yes (Other)
  Sender: FDA-Public Use
  Company Number: CN-JUBILANT CADISTA PHARMACEUTICALS-2018JUB00048

PATIENT
  Age: 20 Year
  Sex: Female

DRUGS (1)
  1. METHYLPREDNISOLONE. [Suspect]
     Active Substance: METHYLPREDNISOLONE
     Dosage: 16 MG, 1X/DAY
     Route: 048

REACTIONS (2)
  - Myopathy [Recovering/Resolving]
  - Muscular dystrophy [Recovering/Resolving]
